FAERS Safety Report 16660415 (Version 1)
Quarter: 2019Q3

REPORT INFORMATION
  Report Type: Report from Study
  Country: US (occurrence: US)
  Receive Date: 20190802
  Receipt Date: 20190802
  Transmission Date: 20191004
  Serious: Yes (Hospitalization)
  Sender: FDA-Public Use
  Company Number: US-ROCHE-2362899

PATIENT
  Sex: Female

DRUGS (2)
  1. ZELBORAF [Suspect]
     Active Substance: VEMURAFENIB
     Indication: COLON CANCER
     Dosage: TAKE 4 TABLET(S) TWICE A DAY
     Route: 048
  2. ZELBORAF [Suspect]
     Active Substance: VEMURAFENIB
     Indication: OFF LABEL USE

REACTIONS (5)
  - Off label use [Unknown]
  - Abdominal pain upper [Unknown]
  - Vomiting [Unknown]
  - Diarrhoea [Unknown]
  - Intentional product use issue [Unknown]
